FAERS Safety Report 9432977 (Version 1)
Quarter: 2013Q3

REPORT INFORMATION
  Report Type: Spontaneous
  Country: US (occurrence: US)
  Receive Date: 20130731
  Receipt Date: 20130731
  Transmission Date: 20140515
  Serious: Yes (Hospitalization)
  Sender: FDA-Public Use
  Company Number: PHHY2013US076738

PATIENT
  Age: 55 Year
  Sex: Female
  Weight: 90.7 kg

DRUGS (13)
  1. XOLAIR [Suspect]
     Indication: ASTHMA
     Dosage: 600 MG, Q4W
     Route: 058
  2. XOLAIR [Suspect]
     Dosage: 300 MG, Q4W
     Route: 058
     Dates: start: 20120524
  3. PREDNISONE [Suspect]
     Indication: ASTHMA
     Dosage: 20 MG, DAILY
     Route: 048
     Dates: start: 20110302
  4. ACCOLATE [Concomitant]
  5. ALVESCO [Concomitant]
     Indication: ASTHMA
     Dosage: 320 MG, (160 UG,2 IN 1 D)
     Route: 048
     Dates: start: 20121206
  6. ARCAPTA [Concomitant]
  7. DULERA [Concomitant]
  8. EPIPEN [Concomitant]
  9. VENTOLIN [Concomitant]
  10. VERAMYST [Concomitant]
  11. VOSOL HC [Concomitant]
  12. BROVANA [Concomitant]
     Indication: ASTHMA
     Dosage: 30 UG, (15 UG, 2 IN 1 D)
     Route: 048
     Dates: start: 20130620
  13. PULMICORT [Concomitant]
     Indication: ASTHMA
     Dosage: 0.5 MG/2ML (2 IN 1 D)
     Route: 048
     Dates: start: 20130620

REACTIONS (2)
  - Dyspnoea [Unknown]
  - Weight increased [Unknown]
